FAERS Safety Report 9824008 (Version 2)
Quarter: 2014Q1

REPORT INFORMATION
  Report Type: Spontaneous
  Country: US (occurrence: US)
  Receive Date: 20140116
  Receipt Date: 20140116
  Transmission Date: 20141002
  Serious: Yes (Hospitalization)
  Sender: FDA-Public Use
  Company Number: US-GILEAD-2011-0038192

PATIENT
  Sex: Female

DRUGS (1)
  1. LETAIRIS [Suspect]
     Indication: PULMONARY ARTERIAL HYPERTENSION
     Route: 048
     Dates: start: 20110302, end: 20110312

REACTIONS (4)
  - Sinusitis [Not Recovered/Not Resolved]
  - Epistaxis [Unknown]
  - Drug ineffective [Not Recovered/Not Resolved]
  - Palpitations [Unknown]
